APPROVED DRUG PRODUCT: PHENYTEX
Active Ingredient: PHENYTOIN SODIUM
Strength: 100MG EXTENDED
Dosage Form/Route: CAPSULE;ORAL
Application: A088711 | Product #001
Applicant: WATSON LABORATORIES INC
Approved: Dec 21, 1984 | RLD: No | RS: No | Type: DISCN